FAERS Safety Report 4688583-8 (Version None)
Quarter: 2005Q2

REPORT INFORMATION
  Report Type: 
  Country: None (occurrence: None)
  Receive Date: 20050613
  Receipt Date: 20050607
  Transmission Date: 20051028
  Serious: Yes (Hospitalization)
  Sender: FDA-Public Use
  Company Number: US-RB-1737-2005

PATIENT
  Age: 34 Year
  Sex: Male

DRUGS (1)
  1. SUBOXONE [Suspect]
     Dosage: UNK INDUCTION DOSE;DAY 26-16 MGS; DAY 27-12 MGS.; DAY 28-8 MGS.
     Dates: start: 20031104

REACTIONS (3)
  - DEPRESSION [None]
  - DISCOMFORT [None]
  - INTENTIONAL SELF-INJURY [None]
